FAERS Safety Report 11230409 (Version 9)
Quarter: 2016Q2

REPORT INFORMATION
  Report Type: Report from Study
  Country: US (occurrence: US)
  Receive Date: 20150629
  Receipt Date: 20160503
  Transmission Date: 20160815
  Serious: Yes (Other)
  Sender: FDA-Public Use
  Company Number: ADR-2015-00844

PATIENT
  Age: 61 Year
  Sex: Male

DRUGS (8)
  1. DILAUDID [Suspect]
     Active Substance: HYDROMORPHONE HYDROCHLORIDE
     Dosage: 0.4993 MG/DAY
     Route: 037
  2. BUPIVACAINE. [Suspect]
     Active Substance: BUPIVACAINE
     Dosage: 9.987 MG/DAY
     Route: 037
  3. ACETAMINOPHEN-CODEINE [Suspect]
     Active Substance: ACETAMINOPHEN\CODEINE PHOSPHATE
     Route: 065
  4. LYRICA [Suspect]
     Active Substance: PREGABALIN
     Route: 065
  5. COMPOUNDED BACLOFEN [Suspect]
     Active Substance: BACLOFEN
     Dosage: 99.87 MCG/DAY
     Route: 037
  6. CLONIDINE. [Suspect]
     Active Substance: CLONIDINE
     Dosage: 66.58 MCG/DAY
     Route: 037
  7. TIZANIDINE. [Suspect]
     Active Substance: TIZANIDINE
     Route: 065
  8. NORTRIPTYLINE [Suspect]
     Active Substance: NORTRIPTYLINE
     Route: 065

REACTIONS (4)
  - Neck pain [Recovered/Resolved]
  - Implant site extravasation [Recovered/Resolved]
  - Pain [Recovered/Resolved]
  - Medical device site hypoaesthesia [Recovered/Resolved]

NARRATIVE: CASE EVENT DATE: 20150126
